FAERS Safety Report 4915783-1 (Version None)
Quarter: 2006Q1

REPORT INFORMATION
  Report Type: 
  Country: None (occurrence: None)
  Receive Date: 20060217
  Receipt Date: 20060208
  Transmission Date: 20060701
  Serious: Yes (Other)
  Sender: FDA-Public Use
  Company Number: JP-ROCHE-436380

PATIENT
  Age: 38 Year
  Sex: Male

DRUGS (4)
  1. TAMIFLU [Suspect]
     Route: 048
     Dates: start: 20060131, end: 20060204
  2. ACETAMINOPHEN [Concomitant]
     Route: 048
     Dates: start: 20060131, end: 20060204
  3. LOXOPROFEN SODIUM [Concomitant]
     Route: 048
     Dates: start: 20060203
  4. EPERISONE HYDROCHLORIDE [Concomitant]
     Route: 048
     Dates: start: 20060203

REACTIONS (2)
  - PLATELET COUNT DECREASED [None]
  - WHITE BLOOD CELL COUNT DECREASED [None]
